FAERS Safety Report 14261416 (Version 1)
Quarter: 2017Q4

REPORT INFORMATION
  Report Type: Spontaneous
  Country: US (occurrence: None)
  Receive Date: 20171207
  Receipt Date: 20171207
  Transmission Date: 20180321
  Serious: No
  Sender: FDA-Public Use
  Company Number: None

PATIENT
  Age: 60 Year
  Sex: Female

DRUGS (1)
  1. LETAIRIS [Suspect]
     Active Substance: AMBRISENTAN
     Indication: HEART DISEASE CONGENITAL
     Route: 048
     Dates: start: 20161022

REACTIONS (10)
  - Nausea [None]
  - Flushing [None]
  - Ophthalmic herpes simplex [None]
  - Sinus pain [None]
  - Eye pain [None]
  - Headache [None]
  - Rash [None]
  - Dyspnoea [None]
  - Cough [None]
  - Ophthalmic herpes zoster [None]

NARRATIVE: CASE EVENT DATE: 20171128
